FAERS Safety Report 14318681 (Version 1)
Quarter: 2017Q4

REPORT INFORMATION
  Report Type: Spontaneous
  Country: MX (occurrence: MX)
  Receive Date: 20171222
  Receipt Date: 20171222
  Transmission Date: 20180321
  Serious: Yes (Other)
  Sender: FDA-Public Use
  Company Number: MX-ASTRAZENECA-2017SF29249

PATIENT
  Sex: Female

DRUGS (3)
  1. METFORMIN [Concomitant]
     Active Substance: METFORMIN HYDROCHLORIDE
     Indication: DIABETES MELLITUS
     Dosage: 1 GR EVERY 24 HRS
  2. METFORMIN [Concomitant]
     Active Substance: METFORMIN HYDROCHLORIDE
     Indication: DIABETES MELLITUS
     Dosage: 1 GR EVERY 12 HOURS
     Dates: end: 20170803
  3. XIGDUO XR [Suspect]
     Active Substance: DAPAGLIFLOZIN PROPANEDIOL\METFORMIN HYDROCHLORIDE
     Indication: DIABETES MELLITUS
     Dosage: 10/1000 MILIGRAMS, ONE TABLET IN THE MORNING
     Route: 048
     Dates: start: 20170803

REACTIONS (7)
  - Necrosis [Unknown]
  - Hyperaemia [Unknown]
  - Localised oedema [Unknown]
  - Pain in extremity [Unknown]
  - Sepsis [Unknown]
  - Cyanosis [Unknown]
  - Toe amputation [Unknown]

NARRATIVE: CASE EVENT DATE: 20171015
